FAERS Safety Report 5134943-0 (Version None)
Quarter: 2006Q4

REPORT INFORMATION
  Report Type: 
  Country: None (occurrence: None)
  Receive Date: 20061025
  Receipt Date: 20061018
  Transmission Date: 20070319
  Serious: Yes (Hospitalization)
  Sender: FDA-Public Use
  Company Number: US-JNJFOC-20060900232

PATIENT
  Sex: Female

DRUGS (11)
  1. RISPERDAL CONSTA [Suspect]
     Indication: DRUG USE FOR UNKNOWN INDICATION
     Route: 030
  2. RISPERDAL [Suspect]
     Indication: DRUG USE FOR UNKNOWN INDICATION
     Route: 048
  3. NAPROXEN [Suspect]
     Indication: DRUG USE FOR UNKNOWN INDICATION
  4. VANCOMYCIN [Concomitant]
  5. ZOSYN [Concomitant]
  6. CIPROFLOXACIN HCL [Concomitant]
  7. CYMBALTA [Concomitant]
  8. KLONOPIN [Concomitant]
  9. LISINOPRIL [Concomitant]
  10. LORATADINE [Concomitant]
  11. PROTONIX [Concomitant]

REACTIONS (1)
  - PNEUMONITIS [None]
